FAERS Safety Report 6852217-4 (Version None)
Quarter: 2010Q3

REPORT INFORMATION
  Report Type: 
  Country: None (occurrence: None)
  Receive Date: 20100717
  Receipt Date: 20071109
  Transmission Date: 20110219
  Serious: No
  Sender: FDA-Public Use
  Company Number: US-PFIZER INC-2007095290

PATIENT
  Sex: Female
  Weight: 69.5 kg

DRUGS (6)
  1. CHANTIX [Suspect]
     Indication: SMOKING CESSATION THERAPY
     Route: 048
     Dates: start: 20070822, end: 20070824
  2. SYNTHROID [Concomitant]
  3. LIPITOR [Concomitant]
  4. HYZAAR [Concomitant]
  5. TOPROL-XL [Concomitant]
  6. DRUG, UNSPECIFIED [Concomitant]
     Indication: CONSTIPATION

REACTIONS (1)
  - CONSTIPATION [None]
